FAERS Safety Report 7266401 (Version 5)
Quarter: 2013Q2

REPORT INFORMATION
  Report Type: Report from Study
  Country: GB (occurrence: GB)
  Receive Date: 20100131
  Receipt Date: 20130606
  Transmission Date: 20140414
  Serious: Yes (Other)
  Sender: FDA-Public Use
  Company Number: GB-JNJFOC-20100107275

PATIENT
  Age: 55 Year
  Sex: Female
  Weight: 51.7 kg

DRUGS (3)
  1. REMICADE [Suspect]
     Indication: PSORIASIS
     Dosage: DOSE IN SERIES=5
     Route: 042
     Dates: start: 20081230, end: 20090721
  2. METHOTREXATE [Concomitant]
     Dates: start: 20090403
  3. FOLIC ACID [Concomitant]
     Dates: start: 20090401

REACTIONS (2)
  - Lupus-like syndrome [Unknown]
  - Psoriasis [Unknown]
